FAERS Safety Report 25601494 (Version 1)
Quarter: 2025Q3

REPORT INFORMATION
  Report Type: Report from Study
  Country: KR (occurrence: KR)
  Receive Date: 20250724
  Receipt Date: 20250724
  Transmission Date: 20251020
  Serious: Yes (Hospitalization)
  Sender: SUNOVION
  Company Number: KR-BIAL-BIAL-15298

PATIENT

DRUGS (44)
  1. ESLICARBAZEPINE ACETATE [Suspect]
     Active Substance: ESLICARBAZEPINE ACETATE
     Indication: Epilepsy
     Dosage: 400 MILLIGRAM, QD
     Route: 048
     Dates: start: 20221121
  2. VALPROATE SODIUM [Concomitant]
     Active Substance: VALPROATE SODIUM
     Indication: Epilepsy
     Dosage: 1 DOSAGE FORM, BID
     Route: 048
     Dates: start: 20221121
  3. Epileptol [Concomitant]
     Indication: Epilepsy
     Dosage: 1 DOSAGE FORM, BID
     Route: 048
     Dates: start: 20160728, end: 20230803
  4. Levitam [Concomitant]
     Indication: Epilepsy
     Dosage: 1 DOSAGE FORM, BID
     Route: 048
     Dates: start: 20190806
  5. ZONISAMIDE [Concomitant]
     Active Substance: ZONISAMIDE
     Indication: Epilepsy
     Dosage: 1 DOSAGE FORM, BID
     Route: 048
     Dates: start: 20190806
  6. ATIVAN [Concomitant]
     Active Substance: LORAZEPAM
     Indication: Epilepsy
     Dosage: 1 DOSAGE FORM, TID
     Route: 042
     Dates: start: 20230801, end: 20230801
  7. CARBAMAZEPINE [Concomitant]
     Active Substance: CARBAMAZEPINE
     Indication: Epilepsy
     Dosage: 1 DOSAGE FORM, BID
     Route: 048
     Dates: start: 20230804
  8. Dulackhan [Concomitant]
     Indication: Coma hepatic
     Dosage: 1 DOSAGE FORM, QD
     Route: 048
     Dates: start: 20230801, end: 20230801
  9. Dulackhan [Concomitant]
     Indication: Prophylaxis
     Dosage: 1 DOSAGE FORM, BID
     Route: 048
     Dates: start: 20230808, end: 20230817
  10. SODIUM CHLORIDE [Concomitant]
     Active Substance: SODIUM CHLORIDE
     Indication: Fluid replacement
     Dosage: 1 DOSAGE FORM, QD
     Route: 042
     Dates: start: 20230801, end: 20230804
  11. ISOTONIC SODIUM CHLORIDE SOLUTION [Concomitant]
     Active Substance: SODIUM CHLORIDE
     Indication: Unevaluable event
     Dosage: 1 DOSAGE FORM, QD
     Route: 042
     Dates: start: 20230802, end: 20230804
  12. ISOTONIC SODIUM CHLORIDE SOLUTION [Concomitant]
     Active Substance: SODIUM CHLORIDE
     Indication: Unevaluable event
     Dosage: 1 DOSAGE FORM, BID
     Route: 042
     Dates: start: 20230802, end: 20230804
  13. ISOTONIC SODIUM CHLORIDE SOLUTION [Concomitant]
     Active Substance: SODIUM CHLORIDE
     Indication: Unevaluable event
     Dosage: 1 DOSAGE FORM, QD
     Route: 042
     Dates: start: 20230802, end: 20230804
  14. ISOTONIC SODIUM CHLORIDE SOLUTION [Concomitant]
     Active Substance: SODIUM CHLORIDE
     Dosage: 1 DOSAGE FORM, QD
     Route: 042
     Dates: start: 20230806, end: 20230806
  15. ISOTONIC SODIUM CHLORIDE SOLUTION [Concomitant]
     Active Substance: SODIUM CHLORIDE
     Dosage: 1 DOSAGE FORM, QD
     Route: 042
     Dates: start: 20230808, end: 20230811
  16. VITAMINS [Concomitant]
     Active Substance: VITAMINS
     Indication: Vitamin supplementation
     Dosage: 1 DOSAGE FORM, QD
     Route: 042
     Dates: start: 20230802, end: 20230817
  17. AMINO ACIDS\DEXTROSE\ELECTROLYTES NOS\SOYBEAN OIL\VITAMINS [Concomitant]
     Active Substance: AMINO ACIDS\DEXTROSE\ELECTROLYTES NOS\SOYBEAN OIL\VITAMINS
     Indication: Nutritional supplementation
     Dosage: 1 DOSAGE FORM, QD
     Route: 042
     Dates: start: 20230802
  18. ATIVAN [Concomitant]
     Active Substance: LORAZEPAM
     Indication: Epilepsy
     Dosage: 0.5 DOSAGE FORM, QD
     Route: 042
     Dates: start: 20230802, end: 20230802
  19. Winuf [Concomitant]
     Indication: Nutritional supplementation
     Dosage: 1 DOSAGE FORM, QD
     Route: 042
     Dates: start: 20230803, end: 20230814
  20. ISOTONIC SODIUM CHLORIDE SOLUTION [Concomitant]
     Active Substance: SODIUM CHLORIDE
     Indication: Unevaluable event
     Dosage: 1 DOSAGE FORM, TID
     Route: 042
     Dates: start: 20230804, end: 20230807
  21. LASIX [Concomitant]
     Active Substance: FUROSEMIDE
     Indication: Prophylaxis
     Dosage: 0.5 DOSAGE FORM, QD
     Route: 042
     Dates: start: 20230804, end: 20230805
  22. LASIX [Concomitant]
     Active Substance: FUROSEMIDE
     Indication: Hypertension
  23. POTASSIUM CHLORIDE [Concomitant]
     Active Substance: POTASSIUM CHLORIDE
     Indication: Mineral supplementation
     Dosage: 1 DOSAGE FORM, QD
     Route: 042
     Dates: start: 20230804, end: 20230807
  24. Plasma Solution A [Concomitant]
     Indication: Fluid replacement
     Dosage: 1 DOSAGE FORM, QD
     Route: 042
     Dates: start: 20230805, end: 20230817
  25. Jw ns [Concomitant]
     Indication: Unevaluable event
     Dosage: 1 DOSAGE FORM, QD
     Route: 040
     Dates: start: 20230806, end: 20230806
  26. Jw ns [Concomitant]
     Dosage: 1 DOSAGE FORM, TID
     Route: 042
     Dates: start: 20230807, end: 20230818
  27. ISOTONIC SODIUM CHLORIDE SOLUTION [Concomitant]
     Active Substance: SODIUM CHLORIDE
     Indication: Unevaluable event
     Dosage: 1 DOSAGE FORM, QD
     Route: 042
     Dates: start: 20230806, end: 20230806
  28. SODIUM CHLORIDE [Concomitant]
     Active Substance: SODIUM CHLORIDE
     Indication: Fluid replacement
     Dosage: 1 DOSAGE FORM, QD
     Route: 042
     Dates: start: 20230805, end: 20230817
  29. Peniramin [Concomitant]
     Indication: Prophylaxis
     Dosage: 1 DOSAGE FORM, QD
     Route: 042
     Dates: start: 20230807, end: 20230807
  30. Atropine sulfate daewon [Concomitant]
     Indication: Sedative therapy
     Dosage: 1 DOSAGE FORM, QD
     Route: 030
     Dates: start: 20230808, end: 20230808
  31. PANTOPRAZOLE SODIUM [Concomitant]
     Active Substance: PANTOPRAZOLE SODIUM
     Indication: Prophylaxis
     Dosage: 1 DOSAGE FORM, QD
     Route: 042
     Dates: start: 20230808, end: 20230817
  32. PANTOPRAZOLE SODIUM [Concomitant]
     Active Substance: PANTOPRAZOLE SODIUM
     Indication: Peptic ulcer
  33. ETOMIDATE [Concomitant]
     Active Substance: ETOMIDATE
     Indication: Endotracheal intubation
     Dosage: 1 DOSAGE FORM, QD
     Route: 042
     Dates: start: 20230803, end: 20230803
  34. ETOMIDATE [Concomitant]
     Active Substance: ETOMIDATE
     Indication: Bronchoscopy
     Dosage: 1 DOSAGE FORM, QD
     Route: 042
     Dates: start: 20230804, end: 20230804
  35. Q rokel [Concomitant]
     Indication: Sedative therapy
     Dosage: 1 DOSAGE FORM, QD
     Route: 048
     Dates: start: 20230812, end: 20230817
  36. HERBALS [Concomitant]
     Active Substance: HERBALS
     Indication: Prophylaxis
     Dosage: 1 DOSAGE FORM, BID
     Route: 048
     Dates: start: 20230812
  37. HERBALS [Concomitant]
     Active Substance: HERBALS
     Indication: Gastrointestinal motility disorder
  38. Jeil Dexamethasone [Concomitant]
     Indication: Extubation
     Dosage: 1 DOSAGE FORM, QD
     Route: 042
     Dates: start: 20230811, end: 20230811
  39. LASIX [Concomitant]
     Active Substance: FUROSEMIDE
     Indication: Polyuria
     Dosage: 0.5 DOSAGE FORM, QD
     Route: 042
     Dates: start: 20230814, end: 20230816
  40. Peniramin [Concomitant]
     Indication: Central venous catheterisation
     Dosage: 1 DOSAGE FORM, QD
     Route: 042
     Dates: start: 20230815, end: 20230815
  41. Peniramin [Concomitant]
     Indication: Infection prophylaxis
  42. Topisol milk lotion [Concomitant]
     Indication: Central venous catheterisation
     Route: 065
  43. Topisol milk lotion [Concomitant]
     Indication: Infection prophylaxis
  44. Enema Sungkwang [Concomitant]
     Indication: Constipation prophylaxis
     Dosage: 60 MILLILITER, QD
     Route: 054
     Dates: start: 20230811, end: 20230811

REACTIONS (4)
  - COVID-19 [Recovered/Resolved]
  - Pneumonia [Recovered/Resolved]
  - Underdose [Unknown]
  - Drug dose titration not performed [Not Recovered/Not Resolved]

NARRATIVE: CASE EVENT DATE: 20220101
